FAERS Safety Report 4827656-3 (Version None)
Quarter: 2005Q4

REPORT INFORMATION
  Report Type: 
  Country: None (occurrence: None)
  Receive Date: 20051114
  Receipt Date: 20051104
  Transmission Date: 20060501
  Serious: Yes (Hospitalization)
  Sender: FDA-Public Use
  Company Number: US-MERCK-0511USA00735

PATIENT
  Age: 50 Year
  Sex: Male

DRUGS (3)
  1. ZOCOR [Suspect]
     Indication: BLOOD CHOLESTEROL INCREASED
     Route: 048
     Dates: start: 20030401, end: 20040708
  2. [THERAPY UNSPECIFIED] [Concomitant]
     Route: 065
  3. ZETIA [Concomitant]
     Route: 048

REACTIONS (5)
  - BLOOD CHOLESTEROL DECREASED [None]
  - CORONARY ARTERY DISEASE [None]
  - CORONARY ARTERY OCCLUSION [None]
  - CORONARY ARTERY REOCCLUSION [None]
  - STENT OCCLUSION [None]
